FAERS Safety Report 10984027 (Version 1)
Quarter: 2015Q2

REPORT INFORMATION
  Report Type: Spontaneous
  Country: US (occurrence: None)
  Receive Date: 20150402
  Receipt Date: 20150402
  Transmission Date: 20150821
  Serious: Yes (Death)
  Sender: FDA-Public Use
  Company Number: None

PATIENT
  Age: 75 Year
  Sex: Female
  Weight: 63.5 kg

DRUGS (4)
  1. IVIG [Suspect]
     Active Substance: HUMAN IMMUNOGLOBULIN G
  2. TAMOXIFEN [Concomitant]
     Active Substance: TAMOXIFEN
  3. VITAMINS -BABY ASPIRIN [Concomitant]
  4. PREDNISONE. [Concomitant]
     Active Substance: PREDNISONE

REACTIONS (10)
  - Incontinence [None]
  - Pulmonary embolism [None]
  - Abasia [None]
  - Pain in extremity [None]
  - Confusional state [None]
  - Pain [None]
  - Myocardial infarction [None]
  - Sepsis [None]
  - Urosepsis [None]
  - Asthenia [None]

NARRATIVE: CASE EVENT DATE: 20141003
